FAERS Safety Report 23160029 (Version 2)
Quarter: 2024Q1

REPORT INFORMATION
  Report Type: Spontaneous
  Country: US (occurrence: US)
  Receive Date: 20231108
  Receipt Date: 20240117
  Transmission Date: 20240410
  Serious: Yes (Death, Other)
  Sender: FDA-Public Use
  Company Number: US-BIOVITRUM-2023-US-017674

PATIENT
  Age: 4 Month
  Sex: Male

DRUGS (2)
  1. SYNAGIS [Suspect]
     Active Substance: PALIVIZUMAB
     Indication: Heart disease congenital
     Dosage: EVERY 28DAYS -30DAYS
     Route: 030
     Dates: start: 20230717
  2. SYNAGIS [Suspect]
     Active Substance: PALIVIZUMAB
     Indication: Hypoplastic left heart syndrome
     Dosage: 75.0000MG, EVERY 28DAYS -30DAYS
     Route: 030
     Dates: start: 20230717, end: 20240110

REACTIONS (3)
  - Pyrexia [Recovered/Resolved]
  - Nasal congestion [Unknown]
  - Death [Fatal]
